FAERS Safety Report 7075704-5 (Version None)
Quarter: 2010Q4

REPORT INFORMATION
  Report Type: 
  Country: None (occurrence: None)
  Receive Date: 20101031
  Receipt Date: 20101019
  Transmission Date: 20110411
  Serious: Yes (Hospitalization)
  Sender: FDA-Public Use
  Company Number: PHHY2010US70766

PATIENT
  Sex: Female
  Weight: 62 kg

DRUGS (1)
  1. EXJADE [Suspect]
     Indication: IRON METABOLISM DISORDER
     Dosage: 1250 MG, UNK
     Route: 048
     Dates: start: 20100727

REACTIONS (1)
  - PNEUMONIA [None]
